FAERS Safety Report 7170575-0 (Version None)
Quarter: 2010Q4

REPORT INFORMATION
  Report Type: 
  Country: None (occurrence: None)
  Receive Date: 20101217
  Receipt Date: 20101209
  Transmission Date: 20110411
  Serious: Yes (Hospitalization)
  Sender: FDA-Public Use
  Company Number: JP-AMGEN-JPNCT2010009639

PATIENT

DRUGS (15)
  1. PANITUMUMAB [Suspect]
     Indication: COLORECTAL CANCER
     Dosage: 6 MG/KG, Q2WK
     Route: 041
     Dates: start: 20100713, end: 20100713
  2. HIRUDOID SOFT [Concomitant]
     Route: 062
  3. FULMETA [Concomitant]
     Route: 062
  4. CALONAL [Concomitant]
     Route: 048
  5. PENTAZOCINE LACTATE [Concomitant]
     Route: 048
  6. PARIET [Concomitant]
     Route: 048
  7. GASMOTIN [Concomitant]
     Route: 048
  8. ADALAT CC [Concomitant]
     Route: 048
  9. RENIVACE [Concomitant]
     Route: 048
  10. SELOKEN L [Concomitant]
     Route: 048
  11. CALCICOL [Concomitant]
     Route: 042
  12. GASTER [Concomitant]
     Route: 042
  13. VITAMEDIN [Concomitant]
     Route: 042
  14. GLUCOSE [Concomitant]
     Route: 042
  15. SOLDEM 1 [Concomitant]
     Route: 042

REACTIONS (4)
  - BLOOD POTASSIUM INCREASED [None]
  - DECREASED APPETITE [None]
  - MALAISE [None]
  - URINARY TRACT INFECTION [None]
